FAERS Safety Report 16042436 (Version 1)
Quarter: 2019Q2

REPORT INFORMATION
  Report Type: Spontaneous
  Country: US (occurrence: US)
  Receive Date: 20190306
  Receipt Date: 20190306
  Transmission Date: 20190711
  Serious: Yes (Disabling)
  Sender: FDA-Public Use
  Company Number: None

PATIENT
  Age: 67 Year
  Sex: Female
  Weight: 63 kg

DRUGS (4)
  1. VIT D [Concomitant]
     Active Substance: VITAMIN D NOS
  2. FISH OIL [Concomitant]
     Active Substance: FISH OIL
  3. AFRIN [Suspect]
     Active Substance: OXYMETAZOLINE
     Indication: NASAL CONGESTION
     Dosage: ?          QUANTITY:2 DROP(S);OTHER ROUTE:NASAL DROPS?
     Dates: start: 20170119, end: 20190119
  4. GNC WOMEN^S ULTRA MEGA 50 PLUS [Concomitant]

REACTIONS (5)
  - Pain [None]
  - Anosmia [None]
  - Ageusia [None]
  - Vascular injury [None]
  - Lacrimation increased [None]

NARRATIVE: CASE EVENT DATE: 20170119
